FAERS Safety Report 18616552 (Version 1)
Quarter: 2020Q4

REPORT INFORMATION
  Report Type: Spontaneous
  Country: US (occurrence: US)
  Receive Date: 20201215
  Receipt Date: 20201215
  Transmission Date: 20210114
  Serious: No
  Sender: FDA-Public Use
  Company Number: US-ITALFARMACO SPA-2102994

PATIENT
  Age: 73 Year
  Sex: Male

DRUGS (1)
  1. TIGLUTIK [Suspect]
     Active Substance: RILUZOLE
     Indication: AMYOTROPHIC LATERAL SCLEROSIS
     Route: 048
     Dates: start: 20201110, end: 20201116

REACTIONS (2)
  - Throat irritation [Recovered/Resolved]
  - Pharyngeal paraesthesia [Recovered/Resolved]
